FAERS Safety Report 9030911 (Version 2)
Quarter: 2013Q1

REPORT INFORMATION
  Report Type: Spontaneous
  Country: US (occurrence: US)
  Receive Date: 20130123
  Receipt Date: 20130221
  Transmission Date: 20140127
  Serious: No
  Sender: FDA-Public Use
  Company Number: US-ROCHE-1182504

PATIENT
  Age: 57 Year
  Sex: Male
  Weight: 79.45 kg

DRUGS (20)
  1. OMALIZUMAB [Suspect]
     Indication: ASTHMA
     Route: 058
     Dates: start: 201101
  2. OMALIZUMAB [Suspect]
     Route: 058
     Dates: start: 20120711, end: 20130118
  3. OMALIZUMAB [Suspect]
     Route: 058
  4. NASOCORT [Concomitant]
  5. ALBUTEROL [Concomitant]
  6. CALCIUM D 500 [Concomitant]
  7. ADVAIR DISKUS [Concomitant]
     Dosage: 500-50 MCG/DOSE
     Route: 065
  8. SINGULAIR [Concomitant]
  9. PRAVASTATIN [Concomitant]
  10. ENALAPRIL [Concomitant]
  11. CALCIUM CARBONATE/CHOLECALCIFEROL [Concomitant]
     Dosage: 600-200 MG
     Route: 065
  12. LISINOPRIL [Concomitant]
     Route: 065
  13. MONTELUKAST SODIUM [Concomitant]
     Route: 065
  14. LOVAZA [Concomitant]
     Route: 065
  15. LOVAZA [Concomitant]
     Route: 065
  16. PANTOPRAZOLE SODIUM [Concomitant]
     Route: 065
  17. PRAVASTATIN SODIUM [Concomitant]
     Route: 065
  18. SUCRALFATE [Concomitant]
     Route: 065
  19. TAMSULOSIN HCL [Concomitant]
     Route: 065
  20. TRIAMCINOLONE ACETONIDE [Concomitant]
     Dosage: 55 MCG/ACT, 2 SPRAYS IN EACH NOSTRIL DAILY.
     Route: 065

REACTIONS (2)
  - Headache [Recovered/Resolved]
  - Dizziness [Recovered/Resolved]
